FAERS Safety Report 24610129 (Version 1)
Quarter: 2024Q4

REPORT INFORMATION
  Report Type: Spontaneous
  Country: ES (occurrence: ES)
  Receive Date: 20241112
  Receipt Date: 20241112
  Transmission Date: 20250115
  Serious: Yes (Other)
  Sender: SK LIFE SCIENCE
  Company Number: ES-SK LIFE SCIENCE, INC-SKPVG-2024-002563

PATIENT

DRUGS (5)
  1. XCOPRI [Suspect]
     Active Substance: CENOBAMATE
     Indication: Epilepsy
     Dosage: 28 TABLETS (14 X 25 MG + 14 X 12.5 MG) (12.5 MG,24 HR)
     Route: 048
  2. XCOPRI [Suspect]
     Active Substance: CENOBAMATE
     Dosage: 28 TABLETS (14 X 25 MG + 14 X 12.5 MG) (25 MG,24 HR)
     Route: 048
     Dates: start: 20241001, end: 20241002
  3. TRILEPTAL [Concomitant]
     Active Substance: OXCARBAZEPINE
     Indication: Product used for unknown indication
     Dosage: (8 ML,12 HR)
     Route: 048
     Dates: start: 20200213
  4. CLOBAZAM [Concomitant]
     Active Substance: CLOBAZAM
     Indication: Product used for unknown indication
     Dosage: (5 MG,24 HR)
     Route: 048
     Dates: start: 20231005
  5. CHOLECALCIFEROL [Concomitant]
     Active Substance: CHOLECALCIFEROL
     Indication: Product used for unknown indication
     Dosage: 10,000 IU/ML ORAL DROPS IN SOLUTION, 1 BOTTLE OF 10 ML (WITH DOSING DROPPER INCLUDED) (3 GTT,24 HR)
     Route: 048
     Dates: start: 20210212

REACTIONS (2)
  - Hypotension [Recovered/Resolved]
  - Rash [Unknown]

NARRATIVE: CASE EVENT DATE: 20241001
